FAERS Safety Report 15681595 (Version 2)
Quarter: 2018Q4

REPORT INFORMATION
  Report Type: Report from Study
  Country: None (occurrence: IL)
  Receive Date: 20181203
  Receipt Date: 20181220
  Transmission Date: 20190205
  Serious: Yes (Other)
  Sender: FDA-Public Use
  Company Number: IL-ABBVIE-18P-082-2570546-00

PATIENT
  Age: 59 Year
  Sex: Male
  Weight: 55 kg

DRUGS (8)
  1. VENETOCLAX. [Suspect]
     Active Substance: VENETOCLAX
     Indication: ACUTE MYELOID LEUKAEMIA
     Route: 048
     Dates: start: 20180823
  2. VENETOCLAX. [Suspect]
     Active Substance: VENETOCLAX
     Indication: STEM CELL TRANSPLANT
  3. VIDAZA [Concomitant]
     Active Substance: AZACITIDINE
     Indication: DISEASE RECURRENCE
     Dosage: 7 DAYS/MONTH
     Route: 058
     Dates: start: 20170924, end: 20181107
  4. NEXIUM [Concomitant]
     Active Substance: ESOMEPRAZOLE MAGNESIUM
     Indication: DYSPEPSIA
     Route: 048
     Dates: start: 20180706
  5. VENETOCLAX. [Suspect]
     Active Substance: VENETOCLAX
     Indication: ACUTE MYELOID LEUKAEMIA RECURRENT
     Route: 048
     Dates: start: 20180910, end: 20181115
  6. VIDAZA [Concomitant]
     Active Substance: AZACITIDINE
     Indication: TRANSPLANT
  7. ACYCLOVIR. [Concomitant]
     Active Substance: ACYCLOVIR
     Indication: ANTIVIRAL PROPHYLAXIS
     Route: 048
     Dates: start: 20170315
  8. BISOPROLOL [Concomitant]
     Active Substance: BISOPROLOL
     Indication: CARDIAC FAILURE
     Route: 048
     Dates: start: 20170706

REACTIONS (2)
  - Leukaemia recurrent [Not Recovered/Not Resolved]
  - Disease progression [Unknown]

NARRATIVE: CASE EVENT DATE: 20181106
